FAERS Safety Report 4417025-2 (Version None)
Quarter: 2004Q2

REPORT INFORMATION
  Report Type: 
  Country: None (occurrence: None)
  Receive Date: 20040629
  Receipt Date: 20040305
  Transmission Date: 20050107
  Serious: No
  Sender: FDA-Public Use
  Company Number: US068761

PATIENT
  Age: 77 Year
  Sex: Male
  Weight: 84.2 kg

DRUGS (2)
  1. ARANESP [Suspect]
     Indication: ANAEMIA
     Dosage: 40 MCG, 1 IN 2 WEEKS, SC
     Route: 058
     Dates: start: 20040114
  2. CYCLOPHOSPHAMIDE [Concomitant]

REACTIONS (1)
  - THERAPEUTIC RESPONSE DECREASED [None]
